FAERS Safety Report 9452271 (Version 1)
Quarter: 2013Q3

REPORT INFORMATION
  Report Type: Spontaneous
  Country: US (occurrence: US)
  Receive Date: 20130812
  Receipt Date: 20130812
  Transmission Date: 20140515
  Serious: No
  Sender: FDA-Public Use
  Company Number: US-009507513-1308USA003342

PATIENT
  Age: 53 Year
  Sex: Male

DRUGS (3)
  1. REBETOL [Suspect]
     Dosage: UNK
  2. VICTRELIS [Suspect]
     Dosage: UNK
  3. PEGASYS [Suspect]
     Dosage: UNK

REACTIONS (2)
  - Constipation [Unknown]
  - Gastrointestinal disorder [Unknown]
